FAERS Safety Report 5643902-0 (Version None)
Quarter: 2008Q1

REPORT INFORMATION
  Report Type: 
  Country: None (occurrence: None)
  Receive Date: 20080226
  Receipt Date: 20080214
  Transmission Date: 20080703
  Serious: Yes (Death)
  Sender: FDA-Public Use
  Company Number: OXER20080003

PATIENT
  Age: 43 Year
  Sex: Male

DRUGS (1)
  1. OXYCODONE HCL EXTENDED-RELEASE [Suspect]
     Dosage: 40 CRUSHED TABS, INJECTION
     Dates: start: 20060101, end: 20060101

REACTIONS (11)
  - ACUTE ABDOMEN [None]
  - AGGRESSION [None]
  - AGITATION [None]
  - BODY TEMPERATURE DECREASED [None]
  - CARDIAC ARREST [None]
  - CONFUSIONAL STATE [None]
  - GLASGOW COMA SCALE ABNORMAL [None]
  - HYPOTENSION [None]
  - INCORRECT ROUTE OF DRUG ADMINISTRATION [None]
  - INTENTIONAL DRUG MISUSE [None]
  - RESPIRATORY ARREST [None]
